FAERS Safety Report 4976966-8 (Version None)
Quarter: 2006Q2

REPORT INFORMATION
  Report Type: 
  Country: None (occurrence: None)
  Receive Date: 20060413
  Receipt Date: 20060331
  Transmission Date: 20061013
  Serious: Yes (Other)
  Sender: FDA-Public Use
  Company Number: 232015K06USA

PATIENT
  Age: 49 Year
  Sex: Male

DRUGS (9)
  1. REBIF [Suspect]
     Indication: MULTIPLE SCLEROSIS
     Dosage: 44 MCG, 3 IN 1 WEEKS, SUBCUTANEOUS
     Route: 058
     Dates: start: 20041122
  2. ALTACVE (RAMIPRIL) [Concomitant]
  3. KEPPRA 9LEVETIRACETAM) [Concomitant]
  4. ADVAIR (SERETIDE) [Concomitant]
  5. BUPROPION HCL [Concomitant]
  6. PROTONIX [Concomitant]
  7. LEVOTHYROXINE SODIUM [Concomitant]
  8. ALLOPURINOL [Concomitant]
  9. IPRATROPIUM AND ALBUTEROL (COMBIVENT) [Concomitant]

REACTIONS (6)
  - BACK PAIN [None]
  - INJECTION SITE ERYTHEMA [None]
  - KIDNEY FIBROSIS [None]
  - NEPHROLITHIASIS [None]
  - RENAL CYST [None]
  - TREMOR [None]
